FAERS Safety Report 4464922-8 (Version None)
Quarter: 2004Q4

REPORT INFORMATION
  Report Type: 
  Country: None (occurrence: None)
  Receive Date: 20041004
  Receipt Date: 20040301
  Transmission Date: 20050328
  Serious: No
  Sender: FDA-Public Use
  Company Number: 364938

PATIENT
  Age: 80 Year
  Sex: Female

DRUGS (2)
  1. COREG [Suspect]
     Indication: ILL-DEFINED DISORDER
     Dosage: 3.125TAB PER DAY
     Route: 048
     Dates: start: 20040229, end: 20040229
  2. DIOVAN [Concomitant]

REACTIONS (1)
  - HEART RATE INCREASED [None]
